FAERS Safety Report 7632593-5 (Version None)
Quarter: 2011Q3

REPORT INFORMATION
  Report Type: 
  Country: None (occurrence: None)
  Receive Date: 20110725
  Receipt Date: 20101026
  Transmission Date: 20111222
  Serious: Yes (Other)
  Sender: FDA-Public Use
  Company Number: US-BRISTOL-MYERS SQUIBB COMPANY-15352339

PATIENT
  Sex: Female

DRUGS (4)
  1. DILANTIN [Concomitant]
  2. WARFARIN SODIUM [Suspect]
     Indication: THROMBOSIS
     Dates: start: 20100901
  3. SEROQUEL [Concomitant]
  4. LORAZEPAM [Concomitant]

REACTIONS (1)
  - INTERNATIONAL NORMALISED RATIO FLUCTUATION [None]
